FAERS Safety Report 11218892 (Version 4)
Quarter: 2015Q4

REPORT INFORMATION
  Report Type: Report from Study
  Country: US (occurrence: US)
  Receive Date: 20150625
  Receipt Date: 20151124
  Transmission Date: 20160304
  Serious: Yes (Hospitalization, Other)
  Sender: FDA-Public Use
  Company Number: US-ALEXION-A201502253

PATIENT
  Sex: Female

DRUGS (1)
  1. SOLIRIS [Suspect]
     Active Substance: ECULIZUMAB
     Indication: PRODUCT USED FOR UNKNOWN INDICATION
     Dosage: UNK
     Route: 042

REACTIONS (13)
  - Platelet count decreased [Not Recovered/Not Resolved]
  - Fatigue [Unknown]
  - Activities of daily living impaired [Unknown]
  - Rash [Not Recovered/Not Resolved]
  - Pain in extremity [Unknown]
  - Blood cholesterol abnormal [Unknown]
  - Myocardial infarction [Unknown]
  - Unevaluable event [Unknown]
  - Pain in jaw [Unknown]
  - Haemoglobin abnormal [Not Recovered/Not Resolved]
  - Renal impairment [Unknown]
  - Asthenia [Unknown]
  - Lung infection [Unknown]

NARRATIVE: CASE EVENT DATE: 20150521
